FAERS Safety Report 4986664-2 (Version None)
Quarter: 2006Q2

REPORT INFORMATION
  Report Type: 
  Country: None (occurrence: None)
  Receive Date: 20060428
  Receipt Date: 20050609
  Transmission Date: 20061013
  Serious: Yes (Hospitalization)
  Sender: FDA-Public Use
  Company Number: US-MERCK-0506USA01877

PATIENT
  Age: 62 Year
  Sex: Female
  Weight: 127 kg

DRUGS (4)
  1. VIOXX [Suspect]
     Indication: ARTHRITIS
     Route: 048
     Dates: start: 20020101
  2. VIOXX [Suspect]
     Indication: PAIN IN EXTREMITY
     Route: 048
     Dates: start: 20020101
  3. HYDROCHLOROTHIAZIDE AND TRIAMTERENE [Concomitant]
     Indication: HYPERTENSION
     Route: 048
     Dates: start: 20000101
  4. HYDROCHLOROTHIAZIDE AND TRIAMTERENE [Concomitant]
     Indication: OEDEMA
     Route: 048
     Dates: start: 20000101

REACTIONS (5)
  - BLOOD CREATINE PHOSPHOKINASE INCREASED [None]
  - HTLV-1 TEST POSITIVE [None]
  - POLYMYOSITIS [None]
  - THROMBOSIS [None]
  - VAGINAL HAEMORRHAGE [None]
